FAERS Safety Report 14017175 (Version 1)
Quarter: 2017Q3

REPORT INFORMATION
  Report Type: Spontaneous
  Country: AU (occurrence: AU)
  Receive Date: 20170927
  Receipt Date: 20170927
  Transmission Date: 20171128
  Serious: Yes (Death, Other)
  Sender: FDA-Public Use
  Company Number: AU-IPSEN BIOSCIENCE, INC.-MER-2017-000334

PATIENT

DRUGS (1)
  1. ONIVYDE [Suspect]
     Active Substance: IRINOTECAN HYDROCHLORIDE
     Indication: PRODUCT USED FOR UNKNOWN INDICATION
     Dosage: 84 MG, UNK, REGIMEN #1
     Route: 042
     Dates: start: 20170519, end: 20170728

REACTIONS (1)
  - Death [Fatal]

NARRATIVE: CASE EVENT DATE: 20170906
